FAERS Safety Report 10975733 (Version 1)
Quarter: 2015Q1

REPORT INFORMATION
  Report Type: Spontaneous
  Country: US (occurrence: None)
  Receive Date: 20150226
  Receipt Date: 20150226
  Transmission Date: 20150721
  Serious: No
  Sender: FDA-Public Use
  Company Number: TPA2009A01817

PATIENT
  Age: 64 Year
  Sex: Male
  Weight: 122.47 kg

DRUGS (10)
  1. ZAROXOLYN (METOLAZONE) [Concomitant]
  2. DEMADEX (TORASEMIDE) [Concomitant]
  3. HUMALOG [Concomitant]
     Active Substance: INSULIN LISPRO
  4. ULORIC [Suspect]
     Active Substance: FEBUXOSTAT
     Indication: GOUT
     Route: 048
     Dates: start: 200904, end: 200905
  5. CELEBREX [Concomitant]
     Active Substance: CELECOXIB
  6. ALLOPURINOL. [Concomitant]
     Active Substance: ALLOPURINOL
  7. VITAMIN B [Concomitant]
     Active Substance: VITAMIN B
  8. ATENOLOL. [Concomitant]
     Active Substance: ATENOLOL
  9. LEXAPRO [Concomitant]
     Active Substance: ESCITALOPRAM OXALATE
  10. LIPITOR [Concomitant]
     Active Substance: ATORVASTATIN CALCIUM

REACTIONS (1)
  - Blood uric acid increased [None]
